FAERS Safety Report 7216808-3 (Version None)
Quarter: 2011Q1

REPORT INFORMATION
  Report Type: 
  Country: None (occurrence: None)
  Receive Date: 20110110
  Receipt Date: 20101229
  Transmission Date: 20110831
  Serious: Yes (Hospitalization)
  Sender: FDA-Public Use
  Company Number: US-RB-018246-11

PATIENT
  Sex: Female

DRUGS (1)
  1. MUCINEX [Suspect]
     Dosage: TOOK 2 TABLETS ON 24-DEC-2010 THEN TOOK 2 TABLETS AT NOON THE NEXT DAY AND 2 MORE AT 9PM.
     Route: 048

REACTIONS (4)
  - URINARY TRACT INFECTION [None]
  - INAPPROPRIATE SCHEDULE OF DRUG ADMINISTRATION [None]
  - PNEUMONIA [None]
  - EXPIRED DRUG ADMINISTERED [None]
